FAERS Safety Report 21172970 (Version 1)
Quarter: 2022Q3

REPORT INFORMATION
  Report Type: Spontaneous
  Country: CN (occurrence: CN)
  Receive Date: 20220804
  Receipt Date: 20220804
  Transmission Date: 20221027
  Serious: Yes (Hospitalization, Other)
  Sender: FDA-Public Use
  Company Number: CN-009507513-2207CHN008971

PATIENT
  Age: 78 Year
  Sex: Male
  Weight: 55 kg

DRUGS (2)
  1. STEGLATRO [Suspect]
     Active Substance: ERTUGLIFLOZIN PIDOLATE
     Indication: Type 2 diabetes mellitus
     Dosage: 2.5 MILLIGRAM, QD
     Route: 048
     Dates: start: 20220315, end: 20220629
  2. GLIMEPIRIDE [Suspect]
     Active Substance: GLIMEPIRIDE
     Indication: Type 2 diabetes mellitus
     Dosage: 2 MILLIGRAM, QD
     Route: 048
     Dates: start: 20220315, end: 20220629

REACTIONS (4)
  - Hypoglycaemic coma [Recovering/Resolving]
  - Decreased appetite [Unknown]
  - Listless [Unknown]
  - Product use issue [Unknown]

NARRATIVE: CASE EVENT DATE: 20220315
